FAERS Safety Report 22797524 (Version 4)
Quarter: 2023Q4

REPORT INFORMATION
  Report Type: Report from Study
  Country: US (occurrence: US)
  Receive Date: 20230808
  Receipt Date: 20231107
  Transmission Date: 20240110
  Serious: No
  Sender: FDA-Public Use
  Company Number: US-002147023-NVSC2023US172696

PATIENT
  Sex: Female

DRUGS (1)
  1. COSENTYX [Suspect]
     Active Substance: SECUKINUMAB
     Indication: Product used for unknown indication
     Dosage: 300 MG, Q4W (2 PENS) IN THE ABDOMEN, THIGH OR OUTER AREA OF UPPER ARM (ROTATE SITES)
     Route: 058

REACTIONS (1)
  - Upper respiratory tract infection [Unknown]
